FAERS Safety Report 4689157-5 (Version None)
Quarter: 2005Q2

REPORT INFORMATION
  Report Type: 
  Country: None (occurrence: None)
  Receive Date: 20050613
  Receipt Date: 20050531
  Transmission Date: 20051028
  Serious: Yes (Other)
  Sender: FDA-Public Use
  Company Number: 2005GB01078

PATIENT
  Age: 81 Year
  Sex: Female

DRUGS (5)
  1. ATENOLOL [Suspect]
     Indication: HYPERTENSION
     Route: 048
  2. BENDROFLUAZIDE [Suspect]
     Indication: HYPERTENSION
     Route: 048
  3. ASPIRIN [Concomitant]
     Indication: PROPHYLAXIS
     Route: 048
  4. SIMVASTATIN [Concomitant]
     Indication: PROPHYLAXIS
     Route: 048
  5. SENNA [Concomitant]
     Indication: CONSTIPATION
     Route: 048

REACTIONS (2)
  - HYPOKALAEMIA [None]
  - HYPOTENSION [None]
